FAERS Safety Report 9227473 (Version 1)
Quarter: 2013Q2

REPORT INFORMATION
  Report Type: Spontaneous
  Country: US (occurrence: None)
  Receive Date: 20130411
  Receipt Date: 20130411
  Transmission Date: 20140414
  Serious: Yes (Hospitalization)
  Sender: FDA-Public Use
  Company Number: None

PATIENT
  Age: 90 Year
  Sex: Female
  Weight: 49.4 kg

DRUGS (13)
  1. MACRODANTIN [Suspect]
     Indication: URINARY TRACT INFECTION
     Dosage: RECENT
     Route: 048
  2. OLANZAPINE [Suspect]
     Indication: DEMENTIA
     Dosage: RECENT
     Route: 048
  3. OLANZAPINE [Suspect]
     Indication: ACUTE PSYCHOSIS
     Dosage: RECENT
     Route: 048
  4. GUAIFENESIN [Concomitant]
  5. ASA [Concomitant]
  6. OXYBUTYNIN [Concomitant]
  7. LORAZEPAM [Concomitant]
  8. APAP [Concomitant]
  9. TOPROL XL [Concomitant]
  10. OLANZAPINE [Concomitant]
  11. CYANOCOBALAMIN [Concomitant]
  12. AZELASTINE [Concomitant]
  13. THIAMINE [Concomitant]

REACTIONS (2)
  - Renal failure acute [None]
  - Tubulointerstitial nephritis [None]
